FAERS Safety Report 6975055-0 (Version None)
Quarter: 2010Q3

REPORT INFORMATION
  Report Type: 
  Country: None (occurrence: None)
  Receive Date: 20100910
  Receipt Date: 20090513
  Transmission Date: 20110219
  Serious: No
  Sender: FDA-Public Use
  Company Number: US-WYE-H08029409

PATIENT
  Sex: Female
  Weight: 60.38 kg

DRUGS (6)
  1. PRISTIQ [Suspect]
     Indication: DEPRESSION
     Route: 048
     Dates: start: 20081229
  2. PRISTIQ [Suspect]
     Route: 048
  3. SUDAFED 12 HOUR [Concomitant]
  4. LUNESTA [Concomitant]
  5. XANAX [Concomitant]
  6. ENBREL [Concomitant]

REACTIONS (3)
  - CONDITION AGGRAVATED [None]
  - DEPRESSED MOOD [None]
  - MEDICATION RESIDUE [None]
